FAERS Safety Report 19914853 (Version 1)
Quarter: 2021Q4

REPORT INFORMATION
  Report Type: Spontaneous
  Country: US (occurrence: US)
  Receive Date: 20211004
  Receipt Date: 20211004
  Transmission Date: 20220303
  Serious: Yes (Hospitalization, Other)
  Sender: FDA-Public Use
  Company Number: US-OTSUKA-2019_042678

PATIENT
  Age: 62 Year
  Sex: Female

DRUGS (3)
  1. ARIPIPRAZOLE [Suspect]
     Active Substance: ARIPIPRAZOLE
     Indication: Bipolar II disorder
     Dosage: 25 MG
     Route: 065
     Dates: start: 201210, end: 201902
  2. LAMICTAL [Suspect]
     Active Substance: LAMOTRIGINE
     Indication: Product used for unknown indication
     Dosage: UNK
     Route: 065
  3. EFFEXOR [Concomitant]
     Active Substance: VENLAFAXINE HYDROCHLORIDE
     Indication: Product used for unknown indication
     Dosage: 37.5 MG
     Route: 065
     Dates: start: 201210, end: 201902

REACTIONS (14)
  - Suicidal behaviour [Unknown]
  - Depression [Unknown]
  - Paranasal sinus hypersecretion [Not Recovered/Not Resolved]
  - Diabetes mellitus inadequate control [Recovered/Resolved]
  - Stomatitis [Not Recovered/Not Resolved]
  - Mania [Not Recovered/Not Resolved]
  - Nervousness [Not Recovered/Not Resolved]
  - Gastrooesophageal reflux disease [Not Recovered/Not Resolved]
  - Weight increased [Recovered/Resolved]
  - Tardive dyskinesia [Not Recovered/Not Resolved]
  - Peripheral swelling [Unknown]
  - Drug hypersensitivity [Unknown]
  - Malaise [Unknown]
  - Therapeutic product effect incomplete [Unknown]

NARRATIVE: CASE EVENT DATE: 20181201
